FAERS Safety Report 6969962-2 (Version None)
Quarter: 2010Q3

REPORT INFORMATION
  Report Type: 
  Country: None (occurrence: None)
  Receive Date: 20100908
  Receipt Date: 20100825
  Transmission Date: 20110219
  Serious: Yes (Hospitalization, Other)
  Sender: FDA-Public Use
  Company Number: PHHY2010JP56543

PATIENT
  Age: 22 Year
  Sex: Female

DRUGS (1)
  1. CYCLOSPORINE [Suspect]
     Indication: LUNG TRANSPLANT
     Dosage: 160 MG DAILY

REACTIONS (8)
  - BLOOD CREATININE INCREASED [None]
  - DEHYDRATION [None]
  - GASTROENTERITIS [None]
  - HYPOGLYCAEMIA [None]
  - METABOLIC ACIDOSIS [None]
  - TONGUE NEOPLASM MALIGNANT STAGE UNSPECIFIED [None]
  - VITAL CAPACITY DECREASED [None]
  - WHITE BLOOD CELL COUNT INCREASED [None]
